FAERS Safety Report 5348933-6 (Version None)
Quarter: 2007Q2

REPORT INFORMATION
  Report Type: 
  Country: None (occurrence: None)
  Receive Date: 20070607
  Receipt Date: 20070530
  Transmission Date: 20071010
  Serious: Yes (Life-Threatening, Hospitalization)
  Sender: FDA-Public Use
  Company Number: US-JNJFOC-20070600049

PATIENT
  Sex: Female
  Weight: 94.8 kg

DRUGS (17)
  1. FENTANYL TRANSDERMAL SYSTEM [Suspect]
     Indication: PAIN
     Route: 062
  2. FENTANYL TRANSDERMAL SYSTEM [Suspect]
     Indication: MIGRAINE
     Route: 062
  3. UNSPECIFIED ANTIBIOTIC [Suspect]
     Indication: SYSTEMIC LUPUS ERYTHEMATOSUS
     Route: 048
  4. PLAVIX [Concomitant]
     Indication: THROMBOSIS
     Route: 048
  5. XANAX [Concomitant]
     Indication: NERVOUSNESS
     Route: 048
  6. LABETALOL HCL [Concomitant]
     Route: 048
  7. LEXAPRO [Concomitant]
     Indication: DEPRESSION
     Route: 048
  8. AMBIEN [Concomitant]
     Dosage: AT NIGHT
     Route: 048
  9. CATAPRES [Concomitant]
     Route: 062
  10. LASIX [Concomitant]
     Route: 048
  11. LORCET-HD [Concomitant]
     Indication: PAIN
     Dosage: 40/650, EVERY 4-6 HOURS
     Route: 048
  12. HYDROCHLOROTHIAZIDE [Concomitant]
     Route: 048
  13. PLAQUENIL [Concomitant]
     Indication: SYSTEMIC LUPUS ERYTHEMATOSUS
     Route: 048
  14. MINOXIDIL [Concomitant]
     Route: 048
  15. PRILOSEC [Concomitant]
     Route: 048
  16. REGLAN [Concomitant]
     Route: 048
  17. POTASSIUM LIQUID [Concomitant]
     Indication: BLOOD POTASSIUM DECREASED
     Dosage: 2 DOSES = 2 TABLESPOONS
     Route: 048

REACTIONS (5)
  - APPLICATION SITE REACTION [None]
  - CONVULSION [None]
  - DRUG INEFFECTIVE [None]
  - HYPERSENSITIVITY [None]
  - WRONG TECHNIQUE IN DRUG USAGE PROCESS [None]
